FAERS Safety Report 4393272-3 (Version None)
Quarter: 2004Q3

REPORT INFORMATION
  Report Type: 
  Country: None (occurrence: None)
  Receive Date: 20040701
  Receipt Date: 20040611
  Transmission Date: 20050211
  Serious: Yes (Death, Hospitalization)
  Sender: FDA-Public Use
  Company Number: US_0406103626

PATIENT
  Sex: Male
  Weight: 1 kg

DRUGS (6)
  1. VINCRISTINE SULFATE [Suspect]
  2. CYCLOPHOSPHAMIDE [Concomitant]
  3. MERCAPTOPURINE [Concomitant]
  4. PREDNISONE [Concomitant]
  5. CYTARABINE [Concomitant]
  6. METHOTREXATE [Concomitant]

REACTIONS (4)
  - DRUG EXPOSURE DURING PREGNANCY [None]
  - NEONATAL DISORDER [None]
  - PANCYTOPENIA [None]
  - SEPSIS NEONATAL [None]
